FAERS Safety Report 20737323 (Version 1)
Quarter: 2022Q2

REPORT INFORMATION
  Report Type: Spontaneous
  Country: US (occurrence: US)
  Receive Date: 20220421
  Receipt Date: 20220421
  Transmission Date: 20220721
  Serious: Yes (Other)
  Sender: FDA-Public Use
  Company Number: US-BRISTOL-MYERS SQUIBB COMPANY-2022-020928

PATIENT
  Sex: Male

DRUGS (1)
  1. ELIQUIS [Suspect]
     Active Substance: APIXABAN
     Indication: Cerebrovascular accident

REACTIONS (6)
  - Haematoma [Not Recovered/Not Resolved]
  - Epistaxis [Unknown]
  - Conjunctival haemorrhage [Recovered/Resolved]
  - Fall [Unknown]
  - Limb injury [Unknown]
  - Eye injury [Unknown]
